FAERS Safety Report 7529421-5 (Version None)
Quarter: 2011Q2

REPORT INFORMATION
  Report Type: 
  Country: None (occurrence: None)
  Receive Date: 20110607
  Receipt Date: 20110528
  Transmission Date: 20111010
  Serious: Yes (Life-Threatening, Hospitalization)
  Sender: FDA-Public Use
  Company Number: US-SANOFI-AVENTIS-2011SA034401

PATIENT
  Age: 80 Year
  Sex: Male

DRUGS (5)
  1. METFORMIN HCL [Concomitant]
     Route: 065
  2. NOVOLOG [Concomitant]
     Route: 065
  3. NOVOLIN 70/30 [Suspect]
     Indication: TYPE 2 DIABETES MELLITUS
     Route: 065
  4. OPTICLICK [Suspect]
     Indication: TYPE 2 DIABETES MELLITUS
     Dates: start: 20090101
  5. LANTUS [Suspect]
     Indication: TYPE 2 DIABETES MELLITUS
     Dosage: DOSE:20 UNIT(S)
     Route: 058
     Dates: start: 20090101

REACTIONS (2)
  - LEG AMPUTATION [None]
  - POOR PERIPHERAL CIRCULATION [None]
